FAERS Safety Report 6394260-8 (Version None)
Quarter: 2009Q4

REPORT INFORMATION
  Report Type: 
  Country: None (occurrence: None)
  Receive Date: 20091006
  Receipt Date: 20090922
  Transmission Date: 20100525
  Serious: Yes (Life-Threatening, Hospitalization, Other)
  Sender: FDA-Public Use
  Company Number: 230014J09CAN

PATIENT
  Age: 60 Year
  Sex: Female

DRUGS (7)
  1. REBIF [Suspect]
     Indication: RELAPSING-REMITTING MULTIPLE SCLEROSIS
     Dosage: 44 MCG, 3 IN 1 WEEKS
     Dates: start: 20090729, end: 20090827
  2. AMANTADINE HCL [Concomitant]
  3. GABAPENTIN [Concomitant]
  4. DIFENAC (DICLOFENAC SODIUM) [Concomitant]
  5. BISOPROLOL     (BISOPROLOL /00802601/) [Concomitant]
  6. CYCLOBENZAPRINE [Concomitant]
  7. RAN-CITALO        [CITALOPRAM HYDROBROMIDE] [Concomitant]

REACTIONS (11)
  - ABNORMAL BEHAVIOUR [None]
  - DRUG HYPERSENSITIVITY [None]
  - FATIGUE [None]
  - GAIT DISTURBANCE [None]
  - MUSCLE RIGIDITY [None]
  - MUSCULOSKELETAL STIFFNESS [None]
  - NAUSEA [None]
  - PYREXIA [None]
  - RESPIRATORY DISTRESS [None]
  - RHABDOMYOLYSIS [None]
  - SOMNOLENCE [None]
